FAERS Safety Report 15489392 (Version 1)
Quarter: 2018Q4

REPORT INFORMATION
  Report Type: Spontaneous
  Country: US (occurrence: US)
  Receive Date: 20181004
  Receipt Date: 20181004
  Transmission Date: 20190205
  Serious: Yes (Hospitalization, Other)
  Sender: FDA-Public Use
  Company Number: None

PATIENT
  Age: 68 Year
  Sex: Female
  Weight: 111.15 kg

DRUGS (21)
  1. IBRANCE [Suspect]
     Active Substance: PALBOCICLIB
     Indication: BREAST CANCER
     Route: 048
     Dates: start: 20180529, end: 20181003
  2. GABAPENTIN. [Concomitant]
     Active Substance: GABAPENTIN
  3. NORCO [Concomitant]
     Active Substance: ACETAMINOPHEN\HYDROCODONE BITARTRATE
  4. ZOFRAN [Concomitant]
     Active Substance: ONDANSETRON HYDROCHLORIDE
  5. SONATA [Concomitant]
     Active Substance: ZALEPLON
  6. MORPHINE [Concomitant]
     Active Substance: MORPHINE
  7. COLACE [Concomitant]
     Active Substance: DOCUSATE SODIUM
  8. CLOPIDOGREL [Concomitant]
     Active Substance: CLOPIDOGREL BISULFATE
  9. LETROZOLE. [Concomitant]
     Active Substance: LETROZOLE
  10. METOPROLOL. [Concomitant]
     Active Substance: METOPROLOL
  11. ISOSORBIDE. [Concomitant]
     Active Substance: ISOSORBIDE
  12. ATIVAN [Concomitant]
     Active Substance: LORAZEPAM
  13. ASPIRIN. [Concomitant]
     Active Substance: ASPIRIN
  14. NITROSTAT [Concomitant]
     Active Substance: NITROGLYCERIN
  15. FLUOXETINE [Concomitant]
     Active Substance: FLUOXETINE HYDROCHLORIDE
  16. LASIX [Concomitant]
     Active Substance: FUROSEMIDE
  17. FAMOTIDINE. [Concomitant]
     Active Substance: FAMOTIDINE
  18. LACTULOSE. [Concomitant]
     Active Substance: LACTULOSE
  19. TEMAZEPAM. [Concomitant]
     Active Substance: TEMAZEPAM
  20. DEXAMETHASONE. [Concomitant]
     Active Substance: DEXAMETHASONE
  21. SIMVASTATIN. [Concomitant]
     Active Substance: SIMVASTATIN

REACTIONS (1)
  - Disease progression [None]
